FAERS Safety Report 11883289 (Version 1)
Quarter: 2015Q4

REPORT INFORMATION
  Report Type: Spontaneous
  Country: GB (occurrence: GB)
  Receive Date: 20151231
  Receipt Date: 20151231
  Transmission Date: 20160305
  Serious: Yes (Life-Threatening, Hospitalization)
  Sender: FDA-Public Use
  Company Number: GB-PFIZER INC-2015478352

PATIENT
  Age: 63 Year
  Sex: Male
  Weight: 78 kg

DRUGS (15)
  1. CHAMPIX [Suspect]
     Active Substance: VARENICLINE TARTRATE
     Indication: SMOKING CESSATION THERAPY
     Dosage: 1 MG, 2X/DAY
     Route: 048
  2. SALBUTAMOL SULFATE [Concomitant]
     Active Substance: ALBUTEROL SULFATE
  3. SIMVASTATIN. [Concomitant]
     Active Substance: SIMVASTATIN
  4. VITAMIN D [Concomitant]
     Active Substance: CHOLECALCIFEROL
  5. MORPHINE [Concomitant]
     Active Substance: MORPHINE
  6. TIOTROPIUM [Concomitant]
     Active Substance: TIOTROPIUM
  7. AMOXICILLIN. [Concomitant]
     Active Substance: AMOXICILLIN
     Dosage: UNK
  8. SYMBICORT [Concomitant]
     Active Substance: BUDESONIDE\FORMOTEROL FUMARATE DIHYDRATE
  9. FENTANYL. [Concomitant]
     Active Substance: FENTANYL
  10. BISACODYL. [Concomitant]
     Active Substance: BISACODYL
  11. OMEPRAZOLE. [Concomitant]
     Active Substance: OMEPRAZOLE
  12. HYOSCINE BUTYLBROMIDE [Concomitant]
     Active Substance: BUTYLSCOPOLAMINE
  13. SERTRALINE HCL [Suspect]
     Active Substance: SERTRALINE HYDROCHLORIDE
     Indication: DEPRESSION
     Dosage: 100 MG, 1X/DAY
     Route: 048
  14. BACLOFEN. [Concomitant]
     Active Substance: BACLOFEN
  15. QUININE [Concomitant]
     Active Substance: QUININE

REACTIONS (3)
  - Hypoxia [Not Recovered/Not Resolved]
  - Respiratory failure [Not Recovered/Not Resolved]
  - Alveolar proteinosis [Not Recovered/Not Resolved]

NARRATIVE: CASE EVENT DATE: 2015
